FAERS Safety Report 8360112-7 (Version None)
Quarter: 2012Q2

REPORT INFORMATION
  Report Type: 
  Country: None (occurrence: None)
  Receive Date: 20120515
  Receipt Date: 20110609
  Transmission Date: 20120825
  Serious: No
  Sender: FDA-Public Use
  Company Number: US-ALEXION-A201100829

PATIENT
  Sex: Male

DRUGS (4)
  1. FOLIC ACID [Concomitant]
     Dosage: UNK
  2. IRON [Concomitant]
     Dosage: UNK
  3. SOLIRIS [Suspect]
     Indication: PAROXYSMAL NOCTURNAL HAEMOGLOBINURIA
     Dosage: 600 MG, QW
     Route: 042
     Dates: start: 20110601, end: 20110622
  4. SOLIRIS [Suspect]
     Dosage: 900 MG, Q2W
     Dates: start: 20110629

REACTIONS (2)
  - HEADACHE [None]
  - NOCTURIA [None]
